FAERS Safety Report 15119367 (Version 1)
Quarter: 2018Q3

REPORT INFORMATION
  Report Type: Spontaneous
  Country: US (occurrence: US)
  Receive Date: 20180612
  Receipt Date: 20180612
  Transmission Date: 20181010
  Serious: Yes (Hospitalization)
  Sender: FDA-Public Use
  Company Number: None

PATIENT
  Age: 84 Year
  Sex: Female
  Weight: 45.7 kg

DRUGS (12)
  1. CHOLESTRYAMNE [Concomitant]
  2. CELEBREX [Concomitant]
     Active Substance: CELECOXIB
  3. VITB12 [Concomitant]
  4. WARFARIN [Suspect]
     Active Substance: WARFARIN
     Indication: DEEP VEIN THROMBOSIS
     Route: 048
  5. NORVASC [Concomitant]
     Active Substance: AMLODIPINE BESYLATE
  6. CATAPRES [Concomitant]
     Active Substance: CLONIDINE HYDROCHLORIDE
  7. WARFARIN [Suspect]
     Active Substance: WARFARIN
     Indication: ATRIAL FIBRILLATION
  8. CALCITRATE [Concomitant]
     Active Substance: CALCIUM CITRATE
  9. COREG [Concomitant]
     Active Substance: CARVEDILOL
  10. WARFARIN [Suspect]
     Active Substance: WARFARIN
     Indication: PULMONARY EMBOLISM
     Route: 048
  11. APAP [Concomitant]
     Active Substance: ACETAMINOPHEN
  12. LIPITOR [Concomitant]
     Active Substance: ATORVASTATIN CALCIUM

REACTIONS (2)
  - Anticoagulation drug level above therapeutic [None]
  - Clostridium difficile colitis [None]

NARRATIVE: CASE EVENT DATE: 20180328
